FAERS Safety Report 19188437 (Version 1)
Quarter: 2021Q2

REPORT INFORMATION
  Report Type: Spontaneous
  Country: JP (occurrence: JP)
  Receive Date: 20210428
  Receipt Date: 20210428
  Transmission Date: 20210717
  Serious: Yes (Other)
  Sender: FDA-Public Use
  Company Number: NVSJ2021JP006097

PATIENT
  Sex: Male

DRUGS (1)
  1. ZOLEDRONIC ACID FOR I.V. INFUSION [Suspect]
     Active Substance: ZOLEDRONIC ACID
     Indication: PRODUCT USED FOR UNKNOWN INDICATION
     Dosage: UNK
     Route: 041

REACTIONS (3)
  - Jaw fracture [Unknown]
  - Osteomyelitis [Unknown]
  - Osteonecrosis of jaw [Unknown]
